FAERS Safety Report 5427736-8 (Version None)
Quarter: 2007Q3

REPORT INFORMATION
  Report Type: 
  Country: None (occurrence: None)
  Receive Date: 20070823
  Receipt Date: 20070820
  Transmission Date: 20080115
  Serious: Yes (Other)
  Sender: FDA-Public Use
  Company Number: S07-USA-03039-01

PATIENT
  Age: 62 Year
  Sex: Female

DRUGS (2)
  1. LEXAPRO [Suspect]
     Indication: ANXIETY
     Dosage: 5 MG QD PO
     Route: 048
     Dates: start: 20040101, end: 20070101
  2. LEXAPRO [Suspect]
     Indication: DEPRESSION
     Dosage: 5 MG QD PO
     Route: 048
     Dates: start: 20040101, end: 20070101

REACTIONS (6)
  - AMNESIA [None]
  - CONVULSION [None]
  - DYSGEUSIA [None]
  - HEADACHE [None]
  - PANIC ATTACK [None]
  - SENSORY DISTURBANCE [None]
